FAERS Safety Report 9584272 (Version 1)
Quarter: 2013Q4

REPORT INFORMATION
  Report Type: Spontaneous
  Country: US (occurrence: US)
  Receive Date: 20131002
  Receipt Date: 20131002
  Transmission Date: 20140711
  Serious: No
  Sender: FDA-Public Use
  Company Number: US-AMGEN-USASP2013052116

PATIENT
  Age: 44 Year
  Sex: Female
  Weight: 32.65 kg

DRUGS (9)
  1. ENBREL [Suspect]
     Indication: PRODUCT USED FOR UNKNOWN INDICATION
     Dosage: 50 MG, QWK
     Route: 058
  2. ZANAFLEX [Concomitant]
     Dosage: 2 MG, UNK
  3. AMBIEN [Concomitant]
     Dosage: 5 MG, UNK
  4. NAPROXEN SOD [Concomitant]
     Dosage: 220 MG, UNK
  5. LOSARTAN HCT [Concomitant]
     Dosage: 100-25
  6. B COMPLEX                          /06817001/ [Concomitant]
     Dosage: UNK
  7. VITAMIN C                          /00008001/ [Concomitant]
     Dosage: 500 MG, UNK
  8. MULTIVITAMINS, PLAIN [Concomitant]
     Dosage: UNK
  9. NEURONTIN [Concomitant]
     Dosage: 300 MG, UNK

REACTIONS (1)
  - Tinea pedis [Unknown]
